FAERS Safety Report 8820441 (Version 1)
Quarter: 2012Q4

REPORT INFORMATION
  Report Type: 
  Country: US (occurrence: US)
  Receive Date: 20121002
  Receipt Date: 20121002
  Transmission Date: 20130627
  Serious: No
  Sender: FDA-Public Use
  Company Number: US-COVIDIEN/TYCO HEALTHCARE/MALLINCKRODT-T201201612

PATIENT
  Age: 49 Year
  Sex: Male

DRUGS (5)
  1. EXALGO EXTENDED RELEASE [Suspect]
     Indication: PAIN
     Dosage: Two 16 mg tab, qd
     Route: 048
     Dates: start: 20120323, end: 20120502
  2. EXALGO EXTENDED RELEASE [Suspect]
     Dosage: 16 mg, qd
     Dates: start: 20120302, end: 20120322
  3. NEXUM [Concomitant]
     Indication: GASTROOESOPHAGEAL REFLUX DISEASE
     Dosage: 40 mg, qd
  4. NORCO [Concomitant]
     Indication: BREAKTHROUGH PAIN
     Dosage: 10/325 mg, 3 to 4 per day
  5. ANTIBIOTICS [Concomitant]
     Indication: URINARY TRACT INFECTION
     Dosage: UNK
     Dates: start: 2012, end: 2012

REACTIONS (7)
  - Urinary tract infection [Recovered/Resolved]
  - Constipation [Not Recovered/Not Resolved]
  - Nausea [Not Recovered/Not Resolved]
  - Eructation [Not Recovered/Not Resolved]
  - Decreased appetite [Not Recovered/Not Resolved]
  - Fatigue [Not Recovered/Not Resolved]
  - Thinking abnormal [Not Recovered/Not Resolved]
